FAERS Safety Report 14789447 (Version 1)
Quarter: 2018Q2

REPORT INFORMATION
  Report Type: Spontaneous
  Country: US (occurrence: US)
  Receive Date: 20180423
  Receipt Date: 20180423
  Transmission Date: 20180711
  Serious: No
  Sender: FDA-Public Use
  Company Number: US-TEVA-805383ACC

PATIENT
  Sex: Female

DRUGS (3)
  1. PRAVASTATIN. [Suspect]
     Active Substance: PRAVASTATIN
     Dosage: 40 MILLIGRAM DAILY;
  2. AMLODIPINE [Concomitant]
     Active Substance: AMLODIPINE BESYLATE
  3. ANASTROZOLE. [Concomitant]
     Active Substance: ANASTROZOLE

REACTIONS (4)
  - Insomnia [Unknown]
  - Feeling abnormal [Unknown]
  - Headache [Unknown]
  - Depression [Unknown]
